FAERS Safety Report 25248279 (Version 2)
Quarter: 2025Q2

REPORT INFORMATION
  Report Type: Report from Study
  Country: US (occurrence: US)
  Receive Date: 20250429
  Receipt Date: 20250506
  Transmission Date: 20250717
  Serious: Yes (Death, Other)
  Sender: BRISTOL-MYERS SQUIBB COMPANY
  Company Number: US-BRISTOL-MYERS SQUIBB COMPANY-2025-060882

PATIENT
  Age: 75 Year
  Sex: Female

DRUGS (2)
  1. AUGTYRO [Suspect]
     Active Substance: REPOTRECTINIB
     Indication: Product used for unknown indication
     Dosage: TAKE 4 CAPSULES BY MOUTH EVERY DAY FOR 14 DAYS, FOLLOWED BY 4 CAPSULES BY MOUTH TWICE A DAY
     Route: 048
  2. AUGTYRO [Suspect]
     Active Substance: REPOTRECTINIB

REACTIONS (1)
  - Death [Fatal]
